FAERS Safety Report 5179109-3 (Version None)
Quarter: 2006Q4

REPORT INFORMATION
  Report Type: 
  Country: None (occurrence: None)
  Receive Date: 20061211
  Receipt Date: 20061128
  Transmission Date: 20070319
  Serious: No
  Sender: FDA-Public Use
  Company Number: 2006-151142-NL

PATIENT
  Age: 29 Year
  Sex: Male

DRUGS (1)
  1. ROCURONIUM BROMIDE [Suspect]

REACTIONS (1)
  - DRUG INEFFECTIVE [None]
